FAERS Safety Report 21083422 (Version 1)
Quarter: 2022Q3

REPORT INFORMATION
  Report Type: Spontaneous
  Country: FR (occurrence: FR)
  Receive Date: 20220714
  Receipt Date: 20220714
  Transmission Date: 20221027
  Serious: Yes (Other)
  Sender: FDA-Public Use
  Company Number: None

PATIENT
  Age: 38 Year
  Sex: Male

DRUGS (6)
  1. ZOLPIDEM [Suspect]
     Active Substance: ZOLPIDEM TARTRATE
     Indication: Product used for unknown indication
     Dosage: 2 DOSAGE FORM, QD (2CPS/DAY)
     Route: 048
  2. SKENAN [Suspect]
     Active Substance: MORPHINE SULFATE
     Indication: Product used for unknown indication
     Dosage: 200 MILLIGRAM, QD (200 MG/DAY)
     Route: 048
  3. OXAZEPAM [Suspect]
     Active Substance: OXAZEPAM
     Indication: Product used for unknown indication
     Dosage: 2 DOSAGE FORM, QD (2CPS/DAY)
     Route: 048
  4. METHADONE [Suspect]
     Active Substance: METHADONE HYDROCHLORIDE
     Indication: Product used for unknown indication
     Dosage: 130 MILLIGRAM, QD (130 MG/DAY)
     Route: 048
  5. COCAINE [Suspect]
     Active Substance: COCAINE
     Indication: Product used for unknown indication
     Dosage: UNK (2 TO 3 TIMES/WEEK)
     Route: 042
  6. COCAINE [Suspect]
     Active Substance: COCAINE
     Dosage: UNK (2 TO 3 TIMES/WEEK)

REACTIONS (2)
  - Substance use disorder [Not Recovered/Not Resolved]
  - Drug use disorder [Not Recovered/Not Resolved]
